FAERS Safety Report 9628298 (Version 1)
Quarter: 2013Q4

REPORT INFORMATION
  Report Type: Spontaneous
  Country: CA (occurrence: CA)
  Receive Date: 20131017
  Receipt Date: 20131017
  Transmission Date: 20140711
  Serious: Yes (Other)
  Sender: FDA-Public Use
  Company Number: CA-BRISTOL-MYERS SQUIBB COMPANY-19485366

PATIENT
  Sex: Female

DRUGS (3)
  1. ABILIFY [Suspect]
     Indication: AUTISM
     Route: 048
  2. ABILIFY [Suspect]
     Indication: IRRITABILITY
     Route: 048
  3. ABILIFY [Suspect]
     Indication: AGGRESSION
     Route: 048

REACTIONS (3)
  - Psychotic disorder [Unknown]
  - Drug withdrawal syndrome [Unknown]
  - Off label use [Unknown]
